FAERS Safety Report 17727034 (Version 1)
Quarter: 2020Q2

REPORT INFORMATION
  Report Type: Spontaneous
  Country: HN (occurrence: HN)
  Receive Date: 20200430
  Receipt Date: 20200430
  Transmission Date: 20200714
  Serious: Yes (Other)
  Sender: FDA-Public Use
  Company Number: HN-PFIZER INC-2020172102

PATIENT
  Age: 84 Year
  Sex: Male

DRUGS (2)
  1. LIPITOR [Suspect]
     Active Substance: ATORVASTATIN CALCIUM
     Dosage: 40 MG, 1X/DAY
     Route: 048
  2. LIPITOR [Suspect]
     Active Substance: ATORVASTATIN CALCIUM
     Dosage: 80 MG, 1X/DAY
     Route: 048

REACTIONS (5)
  - Fatigue [Unknown]
  - Cerebrovascular accident [Unknown]
  - Speech disorder [Unknown]
  - Blood pressure decreased [Unknown]
  - Mobility decreased [Unknown]

NARRATIVE: CASE EVENT DATE: 201910
